FAERS Safety Report 23753598 (Version 2)
Quarter: 2024Q2

REPORT INFORMATION
  Report Type: Spontaneous
  Country: CA (occurrence: None)
  Receive Date: 20240417
  Receipt Date: 20240423
  Transmission Date: 20240716
  Serious: Yes (Hospitalization, Other)
  Sender: FDA-Public Use
  Company Number: 2020SF15124

PATIENT
  Age: 57 Year
  Sex: Female

DRUGS (15)
  1. FULVESTRANT [Suspect]
     Active Substance: FULVESTRANT
     Indication: Chemotherapy
     Dosage: FORM AND FREQUENCY UNKNOWN500.0MG UNKNOWN
     Route: 030
  2. FULVESTRANT [Suspect]
     Active Substance: FULVESTRANT
     Indication: Chemotherapy
     Dosage: FORM AND FREQUENCY UNKNOWN500.0MG UNKNOWN
     Route: 030
  3. PALBOCICLIB [Suspect]
     Active Substance: PALBOCICLIB
     Indication: Chemotherapy
     Route: 048
     Dates: start: 20190825
  4. PALBOCICLIB [Suspect]
     Active Substance: PALBOCICLIB
     Indication: Chemotherapy
     Route: 048
  5. TAMOXIFEN [Suspect]
     Active Substance: TAMOXIFEN
     Indication: Chemotherapy
     Route: 048
     Dates: start: 20130720, end: 20180320
  6. TAMOXIFEN [Suspect]
     Active Substance: TAMOXIFEN
     Indication: Chemotherapy
     Route: 048
  7. CAPECITABINE [Suspect]
     Active Substance: CAPECITABINE
     Indication: Breast cancer female
     Route: 065
     Dates: start: 20190107, end: 20190523
  8. ERIBULIN [Suspect]
     Active Substance: ERIBULIN
     Indication: Chemotherapy
     Route: 042
  9. FEMARA [Suspect]
     Active Substance: LETROZOLE
     Indication: Breast cancer female
     Dosage: UNKNOWN FREQUENCY
     Route: 048
     Dates: start: 201203, end: 201207
  10. FEMARA [Suspect]
     Active Substance: LETROZOLE
     Indication: Breast cancer female
     Dosage: UNKNOWN FREQUENCY
     Route: 048
  11. GEMCITABINE HYDROCHLORIDE [Suspect]
     Active Substance: GEMCITABINE HYDROCHLORIDE
     Indication: Chemotherapy
     Route: 065
     Dates: start: 20180723, end: 20181211
  12. TAXOL [Suspect]
     Active Substance: PACLITAXEL
     Indication: Chemotherapy
     Route: 042
  13. TAXOL [Suspect]
     Active Substance: PACLITAXEL
     Indication: Chemotherapy
     Route: 042
  14. TAXOTERE [Suspect]
     Active Substance: DOCETAXEL
     Indication: Chemotherapy
     Route: 042
  15. VINORELBINE TARTRATE [Suspect]
     Active Substance: VINORELBINE TARTRATE
     Indication: Chemotherapy

REACTIONS (4)
  - Malignant neoplasm progression [Unknown]
  - Breast cancer [Unknown]
  - Drug intolerance [Unknown]
  - Neuropathy peripheral [Unknown]
